FAERS Safety Report 24078610 (Version 2)
Quarter: 2024Q3

REPORT INFORMATION
  Report Type: Spontaneous
  Country: US (occurrence: US)
  Receive Date: 20240711
  Receipt Date: 20240711
  Transmission Date: 20241017
  Serious: Yes (Other)
  Sender: MERCK
  Company Number: US-009507513-2407USA004127

PATIENT
  Sex: Female

DRUGS (2)
  1. TICE BCG [Suspect]
     Active Substance: BACILLUS CALMETTE-GUERIN SUBSTRAIN TICE LIVE ANTIGEN
     Indication: Bladder cancer
     Dosage: UNK
  2. KEYTRUDA [Suspect]
     Active Substance: PEMBROLIZUMAB
     Indication: Bladder cancer
     Dosage: UNK, PRODUCT CIRCULAR NUMBER: USPI-MK3475-IV-2406R077

REACTIONS (2)
  - Bladder cancer recurrent [Unknown]
  - Drug ineffective [Unknown]
